FAERS Safety Report 20862052 (Version 1)
Quarter: 2022Q2

REPORT INFORMATION
  Report Type: Report from Study
  Country: US (occurrence: US)
  Receive Date: 20220523
  Receipt Date: 20220523
  Transmission Date: 20220721
  Serious: Yes (Other)
  Sender: FDA-Public Use
  Company Number: US-OTSUKA-2022_028175

PATIENT
  Sex: Male

DRUGS (1)
  1. TOLVAPTAN [Suspect]
     Active Substance: TOLVAPTAN
     Indication: Congenital cystic kidney disease
     Dosage: UNK
     Route: 065
     Dates: start: 20220503

REACTIONS (15)
  - Oxygen saturation decreased [Unknown]
  - Syncope [Unknown]
  - Motion sickness [Unknown]
  - Feeling abnormal [Unknown]
  - Illness [Unknown]
  - Balance disorder [Unknown]
  - Nasopharyngitis [Unknown]
  - Cold sweat [Unknown]
  - Blood pressure decreased [Unknown]
  - Nausea [Unknown]
  - Polydipsia [Unknown]
  - Dizziness [Unknown]
  - Polyuria [Unknown]
  - Pollakiuria [Unknown]
  - Product dose omission issue [Unknown]
